FAERS Safety Report 8547773-4 (Version None)
Quarter: 2012Q3

REPORT INFORMATION
  Report Type: 
  Country: None (occurrence: None)
  Receive Date: 20120727
  Receipt Date: 20120103
  Transmission Date: 20120928
  Serious: Yes (Hospitalization)
  Sender: FDA-Public Use
  Company Number: US-ASTRAZENECA-2012SE00547

PATIENT
  Age: 27 Year
  Sex: Male

DRUGS (3)
  1. DEPAKOTE [Concomitant]
  2. LITHIUM CARBONATE [Concomitant]
  3. SEROQUEL [Suspect]
     Indication: BIPOLAR I DISORDER
     Route: 048

REACTIONS (3)
  - MANIA [None]
  - EXERCISE LACK OF [None]
  - WEIGHT INCREASED [None]
